FAERS Safety Report 6148744-8 (Version None)
Quarter: 2009Q2

REPORT INFORMATION
  Report Type: 
  Country: None (occurrence: None)
  Receive Date: 20090406
  Receipt Date: 20090406
  Transmission Date: 20091009
  Serious: Yes (Other)
  Sender: FDA-Public Use
  Company Number: None

PATIENT
  Age: 11 Year
  Sex: Male
  Weight: 26.3086 kg

DRUGS (1)
  1. ADDERALL XR 20 [Suspect]
     Indication: ATTENTION DEFICIT/HYPERACTIVITY DISORDER
     Dosage: 20MG QD PO, QD EXCEPT FOR THE 31ST
     Route: 048
     Dates: start: 20090329, end: 20090401

REACTIONS (3)
  - CHEST PAIN [None]
  - HEART RATE INCREASED [None]
  - PRODUCT QUALITY ISSUE [None]
